FAERS Safety Report 6862361-3 (Version None)
Quarter: 2010Q3

REPORT INFORMATION
  Report Type: 
  Country: None (occurrence: None)
  Receive Date: 20100721
  Receipt Date: 20100709
  Transmission Date: 20110219
  Serious: Yes (Disabling, Other)
  Sender: FDA-Public Use
  Company Number: JP-JNJFOC-20100701544

PATIENT
  Sex: Male

DRUGS (13)
  1. LEVOFLOXACIN [Suspect]
     Indication: UPPER RESPIRATORY TRACT INFECTION
     Route: 048
  2. LEVOFLOXACIN [Suspect]
     Route: 048
  3. LEVOFLOXACIN [Suspect]
     Indication: PHARYNGITIS
     Route: 048
  4. LEVOFLOXACIN [Suspect]
     Route: 048
  5. AZELASTINE HCL [Suspect]
     Indication: HYPERTENSION
     Route: 048
  6. ADALAT CC [Suspect]
     Indication: HYPERTENSION
     Route: 048
  7. ADALAT CC [Suspect]
     Route: 048
  8. ATENOLOL [Suspect]
     Indication: HYPERTENSION
     Route: 065
  9. ATENOLOL [Suspect]
     Route: 065
  10. CONIEL [Suspect]
     Indication: HYPERTENSION
     Route: 065
  11. AMLODIPINE [Suspect]
     Indication: HYPERTENSION
     Route: 065
  12. BEVANTOLOL [Suspect]
     Indication: PRODUCT USED FOR UNKNOWN INDICATION
     Route: 048
  13. URINORM [Concomitant]
     Indication: HYPERURICAEMIA
     Route: 048

REACTIONS (7)
  - BLOOD PRESSURE DECREASED [None]
  - CHEST DISCOMFORT [None]
  - DRUG LEVEL INCREASED [None]
  - DYSSTASIA [None]
  - HEART RATE DECREASED [None]
  - MUSCULAR WEAKNESS [None]
  - SHOCK [None]
